FAERS Safety Report 18648510 (Version 7)
Quarter: 2022Q4

REPORT INFORMATION
  Report Type: Spontaneous
  Country: US (occurrence: US)
  Receive Date: 20201222
  Receipt Date: 20221128
  Transmission Date: 20230112
  Serious: Yes (Hospitalization, Other)
  Sender: FDA-Public Use
  Company Number: US-PFIZER INC-2020505699

PATIENT
  Age: 74 Year
  Sex: Female

DRUGS (6)
  1. IBRANCE [Suspect]
     Active Substance: PALBOCICLIB
     Indication: Breast cancer
     Dosage: 125 MG
     Dates: end: 20201130
  2. IBRANCE [Suspect]
     Active Substance: PALBOCICLIB
     Dosage: 100 MG
     Dates: start: 202003, end: 20210123
  3. IBRANCE [Suspect]
     Active Substance: PALBOCICLIB
     Dosage: 100 MG
     Dates: start: 20210314
  4. METOPROLOL [Concomitant]
     Active Substance: METOPROLOL
     Indication: Atrial fibrillation
     Dosage: UNK
  5. ASPIRIN [Concomitant]
     Active Substance: ASPIRIN
     Indication: Anticoagulant therapy
     Dosage: 81 MG, DAILY
  6. ASPIRIN [Concomitant]
     Active Substance: ASPIRIN
     Indication: Atrial fibrillation

REACTIONS (22)
  - Fall [Unknown]
  - Hypertension [Unknown]
  - Foot fracture [Unknown]
  - Product dose omission issue [Unknown]
  - Gait disturbance [Unknown]
  - Joint swelling [Unknown]
  - Mental fatigue [Unknown]
  - Flat affect [Unknown]
  - Stress [Unknown]
  - Decreased appetite [Unknown]
  - Fatigue [Unknown]
  - White blood cell count abnormal [Recovered/Resolved]
  - Hypotension [Unknown]
  - Heart rate decreased [Unknown]
  - Oral pain [Unknown]
  - Arthralgia [Recovered/Resolved]
  - Concussion [Unknown]
  - Asthenia [Unknown]
  - Mouth injury [Recovered/Resolved]
  - Limb injury [Recovered/Resolved]
  - Localised infection [Unknown]
  - Neoplasm progression [Unknown]

NARRATIVE: CASE EVENT DATE: 20201128
